FAERS Safety Report 7707389-6 (Version None)
Quarter: 2011Q3

REPORT INFORMATION
  Report Type: 
  Country: None (occurrence: None)
  Receive Date: 20110824
  Receipt Date: 20110819
  Transmission Date: 20111222
  Serious: Yes (Hospitalization)
  Sender: FDA-Public Use
  Company Number: NO-ABBOTT-10P-122-0654099-00

PATIENT
  Sex: Female

DRUGS (2)
  1. SIBUTRAMINE HYDROCHLORIDE MONOHYDRATE [Suspect]
     Indication: OBESITY
     Route: 048
     Dates: start: 20070424
  2. LEVOTHYROXINE SODIUM [Concomitant]
     Indication: HYPOTHYROIDISM

REACTIONS (7)
  - CHEST PAIN [None]
  - INFARCTION [None]
  - ASTHENIA [None]
  - HYPOAESTHESIA [None]
  - TREMOR [None]
  - BALANCE DISORDER [None]
  - ABDOMINAL PAIN [None]
